FAERS Safety Report 9137112 (Version 1)
Quarter: 2013Q1

REPORT INFORMATION
  Report Type: Spontaneous
  Country: US (occurrence: US)
  Receive Date: 20130304
  Receipt Date: 20130304
  Transmission Date: 20140127
  Serious: No
  Sender: FDA-Public Use
  Company Number: US-ABBOTT-12P-163-0999613-00

PATIENT
  Age: 74 Year
  Sex: Male
  Weight: 91.71 kg

DRUGS (5)
  1. ANDROGEL [Suspect]
     Indication: BLOOD TESTOSTERONE DECREASED
     Dosage: 5 GM PACKET
     Dates: start: 20121012, end: 20121012
  2. METFORMIN [Concomitant]
     Indication: TYPE 2 DIABETES MELLITUS
  3. GLIMEPIRIDE [Concomitant]
     Indication: TYPE 2 DIABETES MELLITUS
  4. HYDROCHOROTHIAZIDE [Concomitant]
     Indication: HYPERTENSION
  5. VITAMIN D [Concomitant]
     Indication: VITAMIN SUPPLEMENTATION

REACTIONS (3)
  - Irritability [Recovered/Resolved]
  - Disorientation [Recovered/Resolved]
  - Mood swings [Unknown]
